FAERS Safety Report 10148824 (Version 1)
Quarter: 2014Q2

REPORT INFORMATION
  Report Type: Spontaneous
  Country: US (occurrence: US)
  Receive Date: 20140502
  Receipt Date: 20140502
  Transmission Date: 20141212
  Serious: Yes (Other)
  Sender: FDA-Public Use
  Company Number: US-ROCHE-1393815

PATIENT
  Sex: Female

DRUGS (1)
  1. VISMODEGIB [Suspect]
     Indication: BASAL CELL CARCINOMA
     Dosage: CONTINUED TO RECEIVE VISMODEGIB OVER NEXT 2.5 YEARS
     Route: 065

REACTIONS (1)
  - Squamous cell carcinoma [Unknown]
